FAERS Safety Report 7885589-2 (Version None)
Quarter: 2011Q4

REPORT INFORMATION
  Report Type: 
  Country: None (occurrence: None)
  Receive Date: 20111102
  Receipt Date: 20110627
  Transmission Date: 20120403
  Serious: No
  Sender: FDA-Public Use
  Company Number: US-AMGEN-USASP2011032586

PATIENT
  Age: 82 Year
  Sex: Female
  Weight: 40.113 kg

DRUGS (13)
  1. HYDROCHLOROTH [Concomitant]
     Dosage: 25 MG, UNK
  2. CENTRUM [Concomitant]
  3. METHOTREXATE [Concomitant]
     Dosage: 2.5 MG, UNK
  4. NAPROSYN [Concomitant]
     Dosage: 500 MG, UNK
  5. CALCIUM [Concomitant]
     Dosage: 500 MG, UNK
  6. METOPROLOL TARTRATE [Concomitant]
     Dosage: 25 MG, UNK
  7. FEXOFENADINE [Concomitant]
     Dosage: 60 MG, UNK
  8. RECLAST [Concomitant]
  9. SIMVASTATIN [Concomitant]
     Dosage: 10 MG, UNK
  10. ENBREL [Suspect]
     Indication: PRODUCT USED FOR UNKNOWN INDICATION
     Dosage: 50 MG, QWK
     Route: 058
     Dates: start: 20000101
  11. PANTOPRAZOLE [Concomitant]
     Dosage: 20 MG, UNK
  12. ASPIRIN [Concomitant]
     Dosage: 81 MG, UNK
  13. VITAMIN E [Concomitant]
     Dosage: 1000 IU, UNK

REACTIONS (3)
  - INJECTION SITE REACTION [None]
  - INJECTION SITE ERYTHEMA [None]
  - INJECTION SITE PRURITUS [None]
